FAERS Safety Report 25637967 (Version 1)
Quarter: 2025Q3

REPORT INFORMATION
  Report Type: Spontaneous
  Country: TW (occurrence: TW)
  Receive Date: 20250804
  Receipt Date: 20250804
  Transmission Date: 20251020
  Serious: Yes (Death, Other)
  Sender: PFIZER
  Company Number: TW-PFM-2025-03677

PATIENT
  Age: 48 Year
  Sex: Female

DRUGS (1)
  1. BRAFTOVI [Suspect]
     Active Substance: ENCORAFENIB
     Dosage: 150 MG, QD (1/DAY)
     Route: 048

REACTIONS (2)
  - Illness [Fatal]
  - Condition aggravated [Fatal]
